FAERS Safety Report 8314874-5 (Version None)
Quarter: 2012Q2

REPORT INFORMATION
  Report Type: 
  Country: None (occurrence: None)
  Receive Date: 20120426
  Receipt Date: 20110808
  Transmission Date: 20120825
  Serious: Yes (Other)
  Sender: FDA-Public Use
  Company Number: US-TEVA-US025118

PATIENT
  Age: 57 Year
  Sex: Female
  Weight: 68.1 kg

DRUGS (7)
  1. PROVIGIL [Suspect]
     Indication: DEPRESSION
     Route: 048
     Dates: start: 20081201
  2. PROVIGIL [Suspect]
     Indication: DEPRESSED LEVEL OF CONSCIOUSNESS
     Dosage: 400 MILLIGRAM;
     Route: 048
     Dates: start: 19990101, end: 20081001
  3. EPHEDRA [Interacting]
  4. WELLBUTRIN [Concomitant]
     Indication: DEPRESSION
     Dosage: 450 MILLIGRAM;
     Route: 048
     Dates: start: 19910101
  5. METHADONE [Concomitant]
     Indication: PAIN
     Route: 048
     Dates: start: 20070101
  6. PROTONIX [Concomitant]
     Indication: GASTRIC DISORDER
     Dosage: 80 MILLIGRAM;
     Route: 048
     Dates: start: 20060101
  7. LEVOTHYROID (LEVOTHYROXINE) [Concomitant]
     Indication: HYPOTHYROIDISM
     Dosage: 150 MICROGRAM;
     Route: 048
     Dates: start: 20040101

REACTIONS (4)
  - HALLUCINATION [None]
  - NAUSEA [None]
  - VOMITING [None]
  - DRUG INTERACTION [None]
